FAERS Safety Report 9329885 (Version 3)
Quarter: 2013Q4

REPORT INFORMATION
  Report Type: Spontaneous
  Country: US (occurrence: US)
  Receive Date: 20130604
  Receipt Date: 20131204
  Transmission Date: 20140711
  Serious: Yes (Death, Hospitalization)
  Sender: FDA-Public Use
  Company Number: US-B.I. PHARMACEUTICALS,INC./RIDGEFIELD-2013-BI-15457BP

PATIENT
  Age: 90 Year
  Sex: Female
  Weight: 52.16 kg

DRUGS (16)
  1. PRADAXA [Suspect]
     Indication: ATRIAL FIBRILLATION
     Dosage: 75 MG
     Route: 048
     Dates: start: 20111227, end: 20120126
  2. COUMADIN [Suspect]
     Dates: end: 20111227
  3. TOPROL [Concomitant]
     Dates: start: 200803, end: 20120204
  4. CALCIUM CARBONATE [Concomitant]
  5. BUSPAR [Concomitant]
  6. MEGACE [Concomitant]
  7. VITAMIN C [Concomitant]
  8. VITAMIN E [Concomitant]
  9. DIGOXIN [Concomitant]
     Dates: start: 200803, end: 20120204
  10. REMERON [Concomitant]
  11. CELEXA [Concomitant]
  12. LOVENOX [Concomitant]
  13. RISPERDOL [Concomitant]
  14. PROTONIX [Concomitant]
  15. GENTAMICIN [Concomitant]
  16. HCTZ [Concomitant]
     Dates: start: 200803, end: 20120204

REACTIONS (7)
  - Gastrointestinal haemorrhage [Fatal]
  - Renal failure acute [Fatal]
  - Shock [Fatal]
  - Gastrointestinal haemorrhage [Recovered/Resolved]
  - Coagulopathy [Recovered/Resolved]
  - Gastrointestinal haemorrhage [Unknown]
  - Normochromic normocytic anaemia [Unknown]
